FAERS Safety Report 7396940-4 (Version None)
Quarter: 2011Q2

REPORT INFORMATION
  Report Type: 
  Country: None (occurrence: None)
  Receive Date: 20110406
  Receipt Date: 20110311
  Transmission Date: 20111010
  Serious: No
  Sender: FDA-Public Use
  Company Number: US-BAYER-2011-023576

PATIENT
  Sex: Female
  Weight: 54 kg

DRUGS (3)
  1. ATENOLOL [Concomitant]
     Dosage: UNK
  2. ALEVE (CAPLET) [Suspect]
     Indication: BACK PAIN
     Dosage: 220 MG, ONCE, BOTTLE COUNT 50S
     Route: 048
     Dates: start: 20110311, end: 20110311
  3. UNCODEABLE ^UNCLASSIFIABLE^ [Concomitant]

REACTIONS (1)
  - BACK PAIN [None]
